FAERS Safety Report 4732547-2 (Version None)
Quarter: 2005Q3

REPORT INFORMATION
  Report Type: 
  Country: None (occurrence: None)
  Receive Date: 20050803
  Receipt Date: 20050727
  Transmission Date: 20060218
  Serious: Yes (Other)
  Sender: FDA-Public Use
  Company Number: RU-GLAXOSMITHKLINE-B0389283A

PATIENT
  Age: 64 Year
  Sex: Male
  Weight: 70 kg

DRUGS (4)
  1. AVANDIA [Suspect]
     Indication: DIABETES MELLITUS
     Dosage: 8MG PER DAY
     Route: 048
     Dates: start: 20050501, end: 20050701
  2. INSULIN [Concomitant]
     Indication: DIABETES MELLITUS
     Dosage: 48UNIT PER DAY
     Dates: start: 20040101
  3. ENALAPRIL [Concomitant]
     Indication: DIABETIC NEPHROPATHY
     Dosage: 40MG PER DAY
     Route: 048
     Dates: start: 20040101
  4. INDAPAMIDE [Concomitant]
     Indication: DIABETIC NEPHROPATHY
     Dosage: 1.5MG PER DAY
     Route: 048
     Dates: start: 20040101

REACTIONS (4)
  - BLOOD CREATININE INCREASED [None]
  - BLOOD UREA INCREASED [None]
  - GLYCOSYLATED HAEMOGLOBIN INCREASED [None]
  - RENAL FAILURE [None]
